FAERS Safety Report 21185907 (Version 2)
Quarter: 2022Q3

REPORT INFORMATION
  Report Type: Report from Study
  Country: CA (occurrence: CA)
  Receive Date: 20220808
  Receipt Date: 20220909
  Transmission Date: 20221027
  Serious: Yes (Other)
  Sender: FDA-Public Use
  Company Number: CA-ABBVIE-22K-028-4495857-00

PATIENT
  Sex: Female
  Weight: 87 kg

DRUGS (1)
  1. HUMIRA [Suspect]
     Active Substance: ADALIMUMAB
     Indication: Crohn^s disease
     Route: 058
     Dates: start: 20151130

REACTIONS (3)
  - Pelvi-ureteric obstruction [Recovered/Resolved]
  - Gastric ulcer [Recovered/Resolved]
  - Nephrolithiasis [Unknown]
